FAERS Safety Report 6186308-0 (Version None)
Quarter: 2009Q2

REPORT INFORMATION
  Report Type: 
  Country: None (occurrence: None)
  Receive Date: 20090511
  Receipt Date: 20090430
  Transmission Date: 20091009
  Serious: Yes (Other)
  Sender: FDA-Public Use
  Company Number: PHEH2007US06797

PATIENT
  Sex: Male

DRUGS (6)
  1. AREDIA [Suspect]
     Dosage: UNK
  2. ZOMETA [Suspect]
     Dosage: UNK
     Dates: end: 20050101
  3. CLINDAMYCIN HCL [Concomitant]
     Dosage: 300 MG, UNK
     Dates: start: 20040101
  4. TAXOTERE [Concomitant]
     Dosage: UNK, UNK
  5. PROSCAR [Concomitant]
     Dosage: UNK, UNK
  6. PERIDEX [Concomitant]
     Dosage: UNK
     Dates: start: 20040101

REACTIONS (16)
  - ANXIETY [None]
  - ARTIFICIAL CROWN PROCEDURE [None]
  - BACTERIAL CULTURE [None]
  - BIOPSY [None]
  - BONE DISORDER [None]
  - DEBRIDEMENT [None]
  - ENDODONTIC PROCEDURE [None]
  - GENERAL PHYSICAL HEALTH DETERIORATION [None]
  - IMPAIRED HEALING [None]
  - OSTEOMYELITIS [None]
  - OSTEOMYELITIS CHRONIC [None]
  - OSTEONECROSIS [None]
  - PAIN [None]
  - TOOTH DISORDER [None]
  - TOOTH EXTRACTION [None]
  - TOOTHACHE [None]
